FAERS Safety Report 23822048 (Version 2)
Quarter: 2024Q2

REPORT INFORMATION
  Report Type: Spontaneous
  Country: US (occurrence: US)
  Receive Date: 20240506
  Receipt Date: 20240507
  Transmission Date: 20240716
  Serious: No
  Sender: FDA-Public Use
  Company Number: US-JNJFOC-20240485147

PATIENT
  Age: 68 Year
  Sex: Female

DRUGS (1)
  1. TYLENOL EXTRA STRENGTH [Suspect]
     Active Substance: ACETAMINOPHEN
     Indication: Pain
     Dosage: JUST TOOK THE PRODUCT ONCE BECAUSE IT INCREASE THE PAIN. INCREASE LEVEL STAYED FOR 2 TO 3 HOURS AND
     Route: 048
     Dates: start: 202210, end: 202210

REACTIONS (1)
  - Inflammation [Not Recovered/Not Resolved]

NARRATIVE: CASE EVENT DATE: 20221001
